FAERS Safety Report 5367851-0 (Version None)
Quarter: 2007Q2

REPORT INFORMATION
  Report Type: 
  Country: None (occurrence: None)
  Receive Date: 20070622
  Receipt Date: 20070614
  Transmission Date: 20071010
  Serious: Yes (Other)
  Sender: FDA-Public Use
  Company Number: US-ELI_LILLY_AND_COMPANY-US200704002811

PATIENT
  Age: 7 Year
  Sex: Male
  Weight: 39.002 kg

DRUGS (2)
  1. STRATTERA [Suspect]
     Indication: ASPERGER'S DISORDER
     Dosage: 60 MG, EACH EVENING
     Route: 048
     Dates: start: 20070101
  2. STRATTERA [Suspect]
     Dosage: 40 MG, DAILY (1/D)
     Route: 048
     Dates: start: 20061208, end: 20070101

REACTIONS (2)
  - INCREASED APPETITE [None]
  - WEIGHT INCREASED [None]
